FAERS Safety Report 24762074 (Version 1)
Quarter: 2024Q4

REPORT INFORMATION
  Report Type: Spontaneous
  Country: US (occurrence: US)
  Receive Date: 20241221
  Receipt Date: 20241221
  Transmission Date: 20250114
  Serious: Yes (Death, Other)
  Sender: ALEXION PHARMACEUTICALS
  Company Number: US-ASTRAZENECA-202412USA016502US

PATIENT
  Age: 39 Year

DRUGS (3)
  1. SEROQUEL [Suspect]
     Active Substance: QUETIAPINE FUMARATE
     Route: 065
  2. FENTANYL [Suspect]
     Active Substance: FENTANYL
     Route: 065
  3. COCAINE [Suspect]
     Active Substance: COCAINE

REACTIONS (2)
  - Toxicity to various agents [Fatal]
  - Drug abuse [Fatal]
